FAERS Safety Report 21998886 (Version 1)
Quarter: 2023Q1

REPORT INFORMATION
  Report Type: Spontaneous
  Country: US (occurrence: US)
  Receive Date: 20230216
  Receipt Date: 20230216
  Transmission Date: 20230418
  Serious: No
  Sender: FDA-Public Use
  Company Number: US-009507513-2302USA000272

PATIENT
  Age: 3 Year
  Sex: Male

DRUGS (29)
  1. NOXAFIL [Suspect]
     Active Substance: POSACONAZOLE
     Indication: Bronchopulmonary aspergillosis
     Dosage: UNK
     Route: 048
  2. NOXAFIL [Suspect]
     Active Substance: POSACONAZOLE
     Indication: Aspergillus infection
  3. NOXAFIL [Suspect]
     Active Substance: POSACONAZOLE
     Indication: Aspergillus infection
  4. NOXAFIL [Suspect]
     Active Substance: POSACONAZOLE
     Indication: Sinusitis
  5. SARGRAMOSTIM [Concomitant]
     Active Substance: SARGRAMOSTIM
     Indication: Bronchopulmonary aspergillosis
     Dosage: 100 ?G/ M2/DOSE 3 TIMES WEEKLY (TIW) X3 ^MO^
  6. SARGRAMOSTIM [Concomitant]
     Active Substance: SARGRAMOSTIM
     Indication: Aspergillus infection
  7. SARGRAMOSTIM [Concomitant]
     Active Substance: SARGRAMOSTIM
     Indication: Aspergillus infection
  8. SARGRAMOSTIM [Concomitant]
     Active Substance: SARGRAMOSTIM
     Indication: Sinusitis
  9. SARGRAMOSTIM [Concomitant]
     Active Substance: SARGRAMOSTIM
     Indication: Mucormycosis
  10. MICAFUNGIN [Concomitant]
     Active Substance: MICAFUNGIN
     Indication: Bronchopulmonary aspergillosis
     Dosage: UNK
  11. MICAFUNGIN [Concomitant]
     Active Substance: MICAFUNGIN
     Indication: Aspergillus infection
  12. MICAFUNGIN [Concomitant]
     Active Substance: MICAFUNGIN
     Indication: Aspergillus infection
  13. MICAFUNGIN [Concomitant]
     Active Substance: MICAFUNGIN
     Indication: Sinusitis
  14. MICAFUNGIN [Concomitant]
     Active Substance: MICAFUNGIN
     Indication: Mucormycosis
  15. VORICONAZOLE [Concomitant]
     Active Substance: VORICONAZOLE
     Indication: Bronchopulmonary aspergillosis
     Dosage: UNK
  16. VORICONAZOLE [Concomitant]
     Active Substance: VORICONAZOLE
     Indication: Aspergillus infection
  17. VORICONAZOLE [Concomitant]
     Active Substance: VORICONAZOLE
     Indication: Aspergillus infection
  18. VORICONAZOLE [Concomitant]
     Active Substance: VORICONAZOLE
     Indication: Sinusitis
  19. VORICONAZOLE [Concomitant]
     Active Substance: VORICONAZOLE
     Indication: Mucormycosis
  20. AMPHOTERICIN B [Concomitant]
     Active Substance: AMPHOTERICIN B
     Indication: Bronchopulmonary aspergillosis
     Dosage: UNK
  21. AMPHOTERICIN B [Concomitant]
     Active Substance: AMPHOTERICIN B
     Indication: Aspergillus infection
  22. AMPHOTERICIN B [Concomitant]
     Active Substance: AMPHOTERICIN B
     Indication: Aspergillus infection
  23. AMPHOTERICIN B [Concomitant]
     Active Substance: AMPHOTERICIN B
     Indication: Sinusitis
  24. AMPHOTERICIN B [Concomitant]
     Active Substance: AMPHOTERICIN B
     Indication: Mucormycosis
  25. OXYGEN [Concomitant]
     Active Substance: OXYGEN
     Indication: Bronchopulmonary aspergillosis
     Dosage: UNK
  26. OXYGEN [Concomitant]
     Active Substance: OXYGEN
     Indication: Aspergillus infection
  27. OXYGEN [Concomitant]
     Active Substance: OXYGEN
     Indication: Aspergillus infection
  28. OXYGEN [Concomitant]
     Active Substance: OXYGEN
     Indication: Sinusitis
  29. OXYGEN [Concomitant]
     Active Substance: OXYGEN
     Indication: Mucormycosis

REACTIONS (1)
  - Product use issue [Unknown]
